FAERS Safety Report 8953504 (Version 1)
Quarter: 2012Q4

REPORT INFORMATION
  Report Type: 
  Country: RU (occurrence: RU)
  Receive Date: 20121206
  Receipt Date: 20121206
  Transmission Date: 20130627
  Serious: Yes (Hospitalization)
  Sender: FDA-Public Use
  Company Number: RU-GLAXOSMITHKLINE-B0850314A

PATIENT
  Sex: Male

DRUGS (4)
  1. VOTRIENT [Suspect]
     Indication: RENAL CELL CARCINOMA
     Dosage: 800MG per day
     Route: 048
     Dates: start: 201110, end: 201205
  2. AVASTIN (BEVACIZUMAB) [Concomitant]
  3. ROFERON-A [Concomitant]
  4. INLYTA [Concomitant]

REACTIONS (2)
  - Pneumonitis [Recovered/Resolved]
  - Pyrexia [Recovered/Resolved]
